FAERS Safety Report 12456065 (Version 1)
Quarter: 2016Q2

REPORT INFORMATION
  Report Type: Spontaneous
  Country: FR (occurrence: FR)
  Receive Date: 20160610
  Receipt Date: 20160610
  Transmission Date: 20160815
  Serious: Yes (Other)
  Sender: FDA-Public Use
  Company Number: FR-009507513-1606FRA004294

PATIENT
  Age: 50 Year
  Sex: Female

DRUGS (5)
  1. KEYTRUDA [Suspect]
     Active Substance: PEMBROLIZUMAB
     Indication: METASTASES TO LYMPH NODES
     Dosage: UNK
     Route: 042
  2. DETICENE [Concomitant]
     Active Substance: DACARBAZINE
  3. KEYTRUDA [Suspect]
     Active Substance: PEMBROLIZUMAB
     Indication: MALIGNANT MELANOMA
  4. YERVOY [Concomitant]
     Active Substance: IPILIMUMAB
  5. ZELBORAF [Concomitant]
     Active Substance: VEMURAFENIB

REACTIONS (1)
  - Periodontitis [Not Recovered/Not Resolved]

NARRATIVE: CASE EVENT DATE: 20160526
